FAERS Safety Report 16652799 (Version 1)
Quarter: 2019Q3

REPORT INFORMATION
  Report Type: Spontaneous
  Country: CN (occurrence: CN)
  Receive Date: 20190731
  Receipt Date: 20190731
  Transmission Date: 20191004
  Serious: Yes (Hospitalization)
  Sender: FDA-Public Use
  Company Number: CN-BAYER-2019-140381

PATIENT
  Age: 82 Year
  Sex: Male

DRUGS (2)
  1. GLUCOBAY [Suspect]
     Active Substance: ACARBOSE
     Indication: TYPE 2 DIABETES MELLITUS
     Dosage: 50 MG, TID
     Route: 048
     Dates: end: 20190713
  2. GLIMEPIRIDE. [Interacting]
     Active Substance: GLIMEPIRIDE
     Indication: TYPE 2 DIABETES MELLITUS
     Dosage: 4 MG, QD
     Route: 048
     Dates: end: 20190713

REACTIONS (7)
  - Fall [Recovering/Resolving]
  - Unresponsive to stimuli [Recovering/Resolving]
  - Listless [Recovering/Resolving]
  - Hypoglycaemic coma [Recovering/Resolving]
  - Altered state of consciousness [Recovering/Resolving]
  - Muscular weakness [Recovering/Resolving]
  - Drug interaction [None]

NARRATIVE: CASE EVENT DATE: 20190713
